FAERS Safety Report 11107518 (Version 1)
Quarter: 2015Q2

REPORT INFORMATION
  Report Type: Spontaneous
  Country: DK (occurrence: DK)
  Receive Date: 20150512
  Receipt Date: 20150512
  Transmission Date: 20150821
  Serious: Yes (Hospitalization, Other)
  Sender: FDA-Public Use
  Company Number: PHHY2015DK053092

PATIENT
  Age: 17 Year
  Sex: Female

DRUGS (3)
  1. LINDYNETTE [Suspect]
     Active Substance: ETHINYL ESTRADIOL\GESTODENE
     Indication: PRODUCT USED FOR UNKNOWN INDICATION
     Route: 065
  2. ETHINYLESTRADIOL W/GESTODENE [Suspect]
     Active Substance: ETHINYL ESTRADIOL\GESTODENE
     Indication: PRODUCT USED FOR UNKNOWN INDICATION
     Route: 065
  3. QLAIRA [Suspect]
     Active Substance: DIENOGEST\ESTRADIOL VALERATE
     Indication: PRODUCT USED FOR UNKNOWN INDICATION
     Route: 065

REACTIONS (13)
  - Discomfort [Unknown]
  - Pain [Unknown]
  - Injury [Unknown]
  - Diaphragmalgia [Unknown]
  - Factor V Leiden mutation [Unknown]
  - Malaise [Unknown]
  - Cough [Recovered/Resolved]
  - Depressed mood [Unknown]
  - Pulmonary embolism [Unknown]
  - Dyspnoea [Recovered/Resolved]
  - Weight increased [Unknown]
  - Pyrexia [Unknown]
  - Palpitations [Unknown]

NARRATIVE: CASE EVENT DATE: 20130314
